FAERS Safety Report 21107584 (Version 1)
Quarter: 2022Q3

REPORT INFORMATION
  Report Type: Spontaneous
  Country: US (occurrence: None)
  Receive Date: 20220720
  Receipt Date: 20220720
  Transmission Date: 20221027
  Serious: Yes (Death)
  Sender: FDA-Public Use
  Company Number: None

PATIENT
  Sex: Male

DRUGS (1)
  1. CAPECITABINE [Suspect]
     Active Substance: CAPECITABINE
     Indication: Malignant neoplasm of thymus
     Dosage: FREQUENCY : EVERY 12 HOURS;?TAKE 4 TABLET BY MOUTH EVERY 12 HOURS FOR 14 DAYS, THEN 7 DAYS OFF?
     Route: 048
     Dates: start: 20220607

REACTIONS (1)
  - Death [None]
